FAERS Safety Report 10121005 (Version 1)
Quarter: 2014Q2

REPORT INFORMATION
  Report Type: Spontaneous
  Country: ZA (occurrence: SD)
  Receive Date: 20140425
  Receipt Date: 20140425
  Transmission Date: 20141212
  Serious: Yes (Other)
  Sender: FDA-Public Use
  Company Number: ZA-GLAXOSMITHKLINE-B0988540A

PATIENT
  Age: 44 Year
  Sex: Female

DRUGS (2)
  1. MALANIL [Suspect]
     Indication: MALARIA
     Dosage: 1TAB PER DAY
     Route: 048
  2. MULTIVITAMINS [Concomitant]

REACTIONS (3)
  - Drug ineffective [Unknown]
  - Vasculitis [Recovered/Resolved]
  - Petechiae [Recovered/Resolved]
